FAERS Safety Report 10279202 (Version 3)
Quarter: 2015Q2

REPORT INFORMATION
  Report Type: Spontaneous
  Country: US (occurrence: US)
  Receive Date: 20140707
  Receipt Date: 20150519
  Transmission Date: 20150821
  Serious: Yes (Other)
  Sender: FDA-Public Use
  Company Number: US-BEH-2014043769

PATIENT
  Age: 24 Year
  Sex: Female

DRUGS (2)
  1. IVIG [Suspect]
     Active Substance: HUMAN IMMUNOGLOBULIN G
     Indication: POLYMYOSITIS
  2. IVIG [Suspect]
     Active Substance: HUMAN IMMUNOGLOBULIN G
     Indication: MYASTHENIA GRAVIS

REACTIONS (3)
  - Drug ineffective for unapproved indication [Recovering/Resolving]
  - Drug ineffective [Recovering/Resolving]
  - Muscular weakness [Recovering/Resolving]
